FAERS Safety Report 9257136 (Version 1)
Quarter: 2013Q1

REPORT INFORMATION
  Report Type: Spontaneous
  Country: US (occurrence: None)
  Receive Date: 20121212
  Receipt Date: 20121212
  Transmission Date: 20140127
  Serious: No
  Sender: FDA-Public Use
  Company Number: 1209USA012026

PATIENT
  Age: 33 Year
  Sex: Male

DRUGS (3)
  1. PEGINTRON [Suspect]
     Indication: HEPATITIS C
     Dates: start: 20120413
  2. REBETOL [Suspect]
     Indication: HEPATITIS C
     Dates: start: 20120413
  3. VICTRELIS [Suspect]
     Indication: HEPATITIS C
     Dates: start: 20120511

REACTIONS (3)
  - Lip dry [None]
  - Chapped lips [None]
  - Alopecia [None]
